FAERS Safety Report 5931817-X (Version None)
Quarter: 2008Q4

REPORT INFORMATION
  Report Type: 
  Country: None (occurrence: None)
  Receive Date: 20081027
  Receipt Date: 20081017
  Transmission Date: 20090506
  Serious: Yes (Other)
  Sender: FDA-Public Use
  Company Number: US-PFIZER INC-2004221166US

PATIENT
  Sex: Female
  Weight: 104.3 kg

DRUGS (5)
  1. CELEBREX [Suspect]
     Indication: MUSCLE INJURY
     Dates: start: 20040301, end: 20040315
  2. CELEBREX [Suspect]
     Indication: PAIN
  3. ALL OTHER THERAPEUTIC PRODUCTS [Suspect]
     Indication: ILL-DEFINED DISORDER
     Dosage: TEXT:UNKNOWN-FREQ:UNKNOWN
     Route: 065
  4. ANTIHYPERTENSIVES [Concomitant]
  5. PHENOBARBITAL TAB [Concomitant]

REACTIONS (19)
  - ABDOMINAL PAIN UPPER [None]
  - AGEUSIA [None]
  - ANGIOPATHY [None]
  - DANDRUFF [None]
  - DRY MOUTH [None]
  - HEAD DISCOMFORT [None]
  - HYPERSENSITIVITY [None]
  - HYPOAESTHESIA ORAL [None]
  - LIP DISORDER [None]
  - LIP PAIN [None]
  - LIP SWELLING [None]
  - MOUTH INJURY [None]
  - MUSCLE INJURY [None]
  - NERVE INJURY [None]
  - ORAL DISCOMFORT [None]
  - SKIN EXFOLIATION [None]
  - SWELLING [None]
  - TONGUE DISORDER [None]
  - TONGUE INJURY [None]
